FAERS Safety Report 9163352 (Version 1)
Quarter: 2013Q1

REPORT INFORMATION
  Report Type: Spontaneous
  Country: US (occurrence: US)
  Receive Date: 20130314
  Receipt Date: 20130314
  Transmission Date: 20140127
  Serious: Yes (Hospitalization, Other)
  Sender: FDA-Public Use
  Company Number: US-PFIZER INC-2013085172

PATIENT
  Age: 79 Year
  Sex: Female
  Weight: 68.5 kg

DRUGS (6)
  1. NORVASC [Suspect]
     Indication: HYPERTENSION
     Dosage: 10 MG, 1X/DAY
     Route: 048
  2. NORVASC [Suspect]
     Dosage: UNK
     Route: 048
  3. NEXIUM [Concomitant]
     Indication: GASTROOESOPHAGEAL REFLUX DISEASE
     Dosage: UNK
  4. SYNTHROID [Concomitant]
     Indication: THYROID DISORDER
     Dosage: UNK
  5. VYTORIN [Concomitant]
     Indication: BLOOD CHOLESTEROL INCREASED
     Dosage: UNK
  6. TYLENOL [Concomitant]
     Dosage: UNK

REACTIONS (7)
  - Pulmonary fibrosis [Unknown]
  - Lung disorder [Unknown]
  - Cough [Unknown]
  - Optic nerve injury [Unknown]
  - Blindness [Unknown]
  - Fall [Unknown]
  - Head injury [Unknown]
